FAERS Safety Report 4688004-5 (Version None)
Quarter: 2005Q2

REPORT INFORMATION
  Report Type: 
  Country: None (occurrence: None)
  Receive Date: 20050608
  Receipt Date: 20050601
  Transmission Date: 20051028
  Serious: Yes (Life-Threatening, Hospitalization, Disabling)
  Sender: FDA-Public Use
  Company Number: 200511102BWH

PATIENT
  Age: 83 Year
  Sex: Male
  Weight: 70.7611 kg

DRUGS (5)
  1. AVELOX [Suspect]
     Dosage: 400 MG, QD, ORAL
     Route: 048
     Dates: start: 20050408, end: 20050409
  2. CARDIZEM [Concomitant]
  3. LOVENOX [Concomitant]
  4. COUMADIN [Concomitant]
  5. LISINOPRIL [Concomitant]

REACTIONS (3)
  - CEREBRAL ARTERY OCCLUSION [None]
  - HEMIPLEGIA [None]
  - LOSS OF CONSCIOUSNESS [None]
